FAERS Safety Report 6649188-2 (Version None)
Quarter: 2010Q1

REPORT INFORMATION
  Report Type: 
  Country: None (occurrence: None)
  Receive Date: 20100324
  Receipt Date: 20100316
  Transmission Date: 20100710
  Serious: Yes (Life-Threatening, Hospitalization)
  Sender: FDA-Public Use
  Company Number: B0634478A

PATIENT
  Age: 45 Year
  Sex: Female
  Weight: 80 kg

DRUGS (7)
  1. LAPATINIB [Suspect]
     Dosage: 1000MG PER DAY
     Route: 048
     Dates: start: 20091104, end: 20091202
  2. XELODA [Suspect]
     Indication: BREAST CANCER
     Dosage: 3500MG PER DAY
     Route: 048
     Dates: start: 20091104, end: 20091202
  3. OMEPRAZOLE [Concomitant]
     Dosage: 20MG PER DAY
  4. ELTHYRONE [Concomitant]
     Dosage: 125MCG PER DAY
  5. UNKNOWN DRUG [Concomitant]
     Dosage: 3TAB PER DAY
  6. DAFALGAN [Concomitant]
  7. TEMESTA [Concomitant]
     Dosage: 1MG AS REQUIRED

REACTIONS (7)
  - ARRHYTHMIA [None]
  - CARDIO-RESPIRATORY ARREST [None]
  - EJECTION FRACTION DECREASED [None]
  - ELECTROCARDIOGRAM QT PROLONGED [None]
  - LOSS OF CONSCIOUSNESS [None]
  - SEPSIS [None]
  - VENTRICULAR FIBRILLATION [None]
